FAERS Safety Report 6342015-2 (Version None)
Quarter: 2009Q3

REPORT INFORMATION
  Report Type: 
  Country: None (occurrence: None)
  Receive Date: 20090904
  Receipt Date: 20090902
  Transmission Date: 20100115
  Serious: Yes (Other)
  Sender: FDA-Public Use
  Company Number: US-MERCK-0907USA05280

PATIENT
  Age: 57 Year
  Sex: Male

DRUGS (8)
  1. ZETIA [Suspect]
     Route: 048
     Dates: start: 20040101
  2. ASPIRIN [Suspect]
     Route: 048
     Dates: start: 20040101
  3. ESOMEPRAZOLE [Concomitant]
     Route: 048
     Dates: start: 20060101
  4. PLAVIX [Suspect]
     Indication: MYOCARDIAL INFARCTION
     Route: 048
     Dates: start: 20040101
  5. ISOSORBIDE [Suspect]
     Route: 048
     Dates: start: 20040101
  6. CRESTOR [Suspect]
     Route: 048
     Dates: start: 20040101
  7. TOPROL-XL [Suspect]
     Route: 048
     Dates: start: 20040101, end: 20070101
  8. TOPROL-XL [Suspect]
     Route: 048
     Dates: start: 20070101

REACTIONS (2)
  - ARTERIAL OCCLUSIVE DISEASE [None]
  - MYOCARDIAL INFARCTION [None]
